FAERS Safety Report 9923985 (Version 1)
Quarter: 2014Q1

REPORT INFORMATION
  Report Type: Spontaneous
  Country: US (occurrence: US)
  Receive Date: 20140225
  Receipt Date: 20140225
  Transmission Date: 20141002
  Serious: Yes (Hospitalization, Other)
  Sender: FDA-Public Use
  Company Number: US-B.I. PHARMACEUTICALS,INC./RIDGEFIELD-2014-BI-07655BP

PATIENT
  Sex: Female
  Weight: 91 kg

DRUGS (12)
  1. SPIRIVA [Suspect]
     Indication: CHRONIC OBSTRUCTIVE PULMONARY DISEASE
     Dosage: 18 MCG
     Route: 055
     Dates: start: 2002
  2. WELBUTRIN [Concomitant]
     Indication: BIPOLAR DISORDER
     Dosage: 150 MG
     Route: 048
  3. LAMICTAL [Concomitant]
     Indication: BIPOLAR DISORDER
     Dosage: 150 MG
     Route: 048
  4. SYNTHROID [Concomitant]
     Indication: HYPOTHYROIDISM
     Dosage: 75 MCG
     Route: 048
  5. EFFEXOR [Concomitant]
     Dosage: 150 MG
     Route: 048
  6. PRIMIDONE [Concomitant]
     Dosage: 100 MG
     Route: 048
  7. ZYPREXA [Concomitant]
     Dosage: 10 MG
     Route: 048
  8. CRESTOR [Concomitant]
     Indication: BLOOD CHOLESTEROL INCREASED
     Dosage: 40 MG
     Route: 048
  9. ERYTHROMYCIN [Concomitant]
     Indication: BACTERIAL DISEASE CARRIER
     Route: 048
  10. FOSAMAX [Concomitant]
     Indication: OSTEOPOROSIS
     Dosage: 10 MG
     Route: 048
  11. LORAZAPAM [Concomitant]
     Indication: SEDATIVE THERAPY
     Route: 048
  12. ADVAIR [Concomitant]
     Indication: CHRONIC OBSTRUCTIVE PULMONARY DISEASE
     Dosage: 50 MCG
     Route: 055

REACTIONS (7)
  - Pulmonary congestion [Recovered/Resolved]
  - Blindness [Not Recovered/Not Resolved]
  - Macular degeneration [Not Recovered/Not Resolved]
  - Weight increased [Not Recovered/Not Resolved]
  - Body height decreased [Not Recovered/Not Resolved]
  - Increased appetite [Not Recovered/Not Resolved]
  - Chronic obstructive pulmonary disease [Not Recovered/Not Resolved]
